FAERS Safety Report 5887386-6 (Version None)
Quarter: 2008Q3

REPORT INFORMATION
  Report Type: 
  Country: None (occurrence: None)
  Receive Date: 20080915
  Receipt Date: 20080905
  Transmission Date: 20090109
  Serious: Yes (Other)
  Sender: FDA-Public Use
  Company Number: 2008SP016830

PATIENT
  Age: 53 Year
  Sex: Male

DRUGS (5)
  1. PEG-INTRON [Suspect]
     Indication: HEPATITIS C
  2. RIBAVIRIN [Suspect]
     Indication: HEPATITIS C
     Dosage: PO
     Route: 048
  3. CITRICAL [Concomitant]
  4. METOCLOPRAMIDE [Concomitant]
  5. GLUCOSAMINE [Concomitant]

REACTIONS (1)
  - OPTIC NEUROPATHY [None]
